FAERS Safety Report 9345829 (Version 6)
Quarter: 2013Q3

REPORT INFORMATION
  Report Type: Spontaneous
  Country: US (occurrence: US)
  Receive Date: 20130613
  Receipt Date: 20130826
  Transmission Date: 20140515
  Serious: Yes (Hospitalization)
  Sender: FDA-Public Use
  Company Number: US-PFIZER INC-2013176462

PATIENT
  Age: 75 Year
  Sex: Male
  Weight: 112 kg

DRUGS (15)
  1. SUTENT [Suspect]
     Indication: RENAL CELL CARCINOMA
     Dosage: 50 MG,UNK, CYCLIC (4 WEEKS AND 2 WEEKS OF WASH OUT PHASE)
     Route: 048
     Dates: start: 201306, end: 2013
  2. SUTENT [Suspect]
     Indication: METASTATIC RENAL CELL CARCINOMA
     Dosage: 25 MG, 1X/DAY
     Route: 048
     Dates: start: 2013
  3. SUTENT [Suspect]
     Dosage: 50 MG, 1X/DAY
     Route: 048
     Dates: start: 20130511, end: 20130605
  4. SUTENT [Suspect]
     Dosage: 25 MG, CYCLIC (25MG PO DAILY X 28 DAYS ON 14 DAYS OFF )
     Route: 048
     Dates: start: 20130629
  5. IBUPROFEN [Concomitant]
     Dosage: 600 MG, 1X/DAY
  6. METOPROLOL [Concomitant]
     Dosage: 50 MG, 1X/DAY
  7. ASPIRIN [Concomitant]
     Dosage: 81 MG, 1X/DAY
  8. LISINOPRIL [Concomitant]
     Dosage: 10 MG, 1X/DAY
  9. OMEPRAZOLE [Concomitant]
     Dosage: 20 MG, 1X/DAY
  10. FLEXERIL [Concomitant]
     Dosage: 10 MG, AS NEEDED
     Route: 048
  11. NITRO [Concomitant]
     Indication: ANGINA PECTORIS
     Dosage: UNK, AS NEEDED
  12. STOOL SOFTENER [Concomitant]
     Dosage: UNK
  13. GABAPENTIN [Concomitant]
     Dosage: 300 MG, 3X/DAY
  14. COMPAZINE [Concomitant]
     Dosage: 5 MG, AS NEEDED (EVERY 4 HRS)
  15. OXYCODONE ACETAMINOPHEN [Concomitant]
     Dosage: UNK (1 PRN)

REACTIONS (13)
  - Pancreatitis [Recovered/Resolved]
  - Oral pain [Unknown]
  - Glossodynia [Unknown]
  - Hyperkeratosis [Unknown]
  - Fatigue [Not Recovered/Not Resolved]
  - Diarrhoea [Recovered/Resolved]
  - Flatulence [Not Recovered/Not Resolved]
  - Abdominal discomfort [Unknown]
  - Dysgeusia [Recovering/Resolving]
  - Abdominal pain [Recovered/Resolved]
  - Stomatitis [Unknown]
  - Lipase increased [Recovered/Resolved]
  - Amylase increased [Recovered/Resolved]
